FAERS Safety Report 21985849 (Version 1)
Quarter: 2023Q1

REPORT INFORMATION
  Report Type: Spontaneous
  Country: US (occurrence: None)
  Receive Date: 20230211
  Receipt Date: 20230211
  Transmission Date: 20230417
  Serious: No
  Sender: FDA-Public Use
  Company Number: None

PATIENT
  Age: 97 Year
  Sex: Female
  Weight: 66.15 kg

DRUGS (1)
  1. ERTAPENEM [Suspect]
     Active Substance: ERTAPENEM
     Indication: Urinary tract infection
     Dosage: OTHER QUANTITY : 1 INJECTION(S);?FREQUENCY : DAILY;?
     Route: 042
     Dates: start: 20230127, end: 20230209

REACTIONS (4)
  - Asthenia [None]
  - Confusional state [None]
  - Fall [None]
  - Mobility decreased [None]

NARRATIVE: CASE EVENT DATE: 20230131
